FAERS Safety Report 26121818 (Version 1)
Quarter: 2025Q4

REPORT INFORMATION
  Report Type: Spontaneous
  Country: US (occurrence: None)
  Receive Date: 20251204
  Receipt Date: 20251204
  Transmission Date: 20260118
  Serious: No
  Sender: FDA-CTU
  Company Number: None

PATIENT
  Age: 29 Year
  Sex: Female
  Weight: 90 kg

DRUGS (3)
  1. ZEPBOUND [Suspect]
     Active Substance: TIRZEPATIDE
  2. WEGOVY [Suspect]
     Active Substance: SEMAGLUTIDE
  3. Hair, skin and nails multivitamin [Concomitant]

REACTIONS (2)
  - Pain [None]
  - Lymphadenopathy [None]

NARRATIVE: CASE EVENT DATE: 20251204
